FAERS Safety Report 24550730 (Version 1)
Quarter: 2024Q4

REPORT INFORMATION
  Report Type: Spontaneous
  Country: ES (occurrence: ES)
  Receive Date: 20241025
  Receipt Date: 20241025
  Transmission Date: 20250115
  Serious: No
  Sender: JAZZ
  Company Number: ES-JAZZ PHARMACEUTICALS-2024-ES-016050

PATIENT
  Sex: Male
  Weight: 22 kg

DRUGS (1)
  1. DEFITELIO [Suspect]
     Active Substance: DEFIBROTIDE SODIUM
     Indication: Prophylaxis
     Dosage: 138 MILLIGRAM, Q6H, EVERY 6 HOURS
     Dates: start: 20240923

REACTIONS (1)
  - Off label use [Unknown]
